FAERS Safety Report 6547186-0 (Version None)
Quarter: 2010Q1

REPORT INFORMATION
  Report Type: 
  Country: None (occurrence: None)
  Receive Date: 20100122
  Receipt Date: 20100111
  Transmission Date: 20100710
  Serious: Yes (Other)
  Sender: FDA-Public Use
  Company Number: US-SANOFI-AVENTIS-2010SA003446

PATIENT
  Age: 82 Year
  Sex: Male

DRUGS (10)
  1. PLAVIX [Suspect]
     Indication: STENT PLACEMENT
     Route: 048
     Dates: start: 20090101, end: 20100104
  2. PLAVIX [Suspect]
     Route: 048
     Dates: start: 20100112
  3. ACTOS [Concomitant]
  4. GLUCOPHAGE [Concomitant]
  5. METOPROLOL [Concomitant]
  6. LOPID [Concomitant]
  7. CRESTOR [Concomitant]
  8. ASPIRIN [Concomitant]
  9. IRON [Concomitant]
  10. OMEPRAZOLE [Concomitant]

REACTIONS (4)
  - AORTIC ANEURYSM [None]
  - CONFUSIONAL STATE [None]
  - CONTUSION [None]
  - DIZZINESS [None]
